FAERS Safety Report 16318447 (Version 1)
Quarter: 2019Q2

REPORT INFORMATION
  Report Type: Spontaneous
  Country: US (occurrence: US)
  Receive Date: 20190516
  Receipt Date: 20190516
  Transmission Date: 20190711
  Serious: Yes (Death, Hospitalization)
  Sender: FDA-Public Use
  Company Number: US-TEVA-2019-US-1049665

PATIENT
  Age: 2 Month
  Sex: Male
  Weight: 4.8 kg

DRUGS (8)
  1. EPINEPHRINE. [Suspect]
     Active Substance: EPINEPHRINE
     Indication: CARDIAC ARREST
     Dosage: 9 DOSES OF EPINEPHRINE (2-10 MICROG/KG)
     Route: 065
  2. CALCIUM-GLUCONATE [Suspect]
     Active Substance: CALCIUM GLUCONATE
     Indication: CARDIAC ARREST
     Dosage: ONE DOSE OF CALCIUM GLUCONATE 5 MG/KG
     Route: 065
  3. PROPOFOL. [Suspect]
     Active Substance: PROPOFOL
     Indication: INDUCTION OF ANAESTHESIA
     Route: 042
  4. EPINEPHRINE. [Suspect]
     Active Substance: EPINEPHRINE
     Indication: CARDIAC ARREST
     Route: 050
  5. EPINEPHRINE. [Suspect]
     Active Substance: EPINEPHRINE
     Indication: CARDIAC ARREST
     Dosage: BOLUS DOSE
     Route: 065
  6. SEVOFLURANE. [Suspect]
     Active Substance: SEVOFLURANE
     Indication: INDUCTION OF ANAESTHESIA
     Dosage: CONCENTRATION OF SEVOFLURANE 8% WHICH WAS LATER DECREASED TO 3%
     Route: 065
  7. MAGNESIUM SULFATE. [Suspect]
     Active Substance: MAGNESIUM SULFATE
     Indication: CARDIAC ARREST
     Dosage: FREQUENCY: SINGLE DOSE OF MAGNESIUM SULFATE 30 MG/KG
     Route: 065
  8. SODIUM BICARBONATE. [Suspect]
     Active Substance: SODIUM BICARBONATE
     Indication: CARDIAC ARREST
     Dosage: FOUR DOSES OF SODIUM BICARBONATE (2-5 MEQ/KG)
     Route: 065

REACTIONS (4)
  - Seizure [Fatal]
  - Cardiac arrest [Fatal]
  - Drug ineffective [Fatal]
  - Hypoxic-ischaemic encephalopathy [Fatal]
